FAERS Safety Report 19255951 (Version 3)
Quarter: 2021Q2

REPORT INFORMATION
  Report Type: Spontaneous
  Country: US (occurrence: US)
  Receive Date: 20210514
  Receipt Date: 20210616
  Transmission Date: 20210717
  Serious: Yes (Hospitalization, Disabling)
  Sender: FDA-Public Use
  Company Number: US-ENCUBE-000067

PATIENT
  Sex: Male

DRUGS (1)
  1. DICLOFENAC SODIUM TOPICAL GEL 1% [Suspect]
     Active Substance: DICLOFENAC SODIUM
     Indication: PAIN
     Route: 061

REACTIONS (5)
  - Hemiplegia [Not Recovered/Not Resolved]
  - Hemiparesis [Not Recovered/Not Resolved]
  - Apnoea [Not Recovered/Not Resolved]
  - Cerebrovascular accident [Not Recovered/Not Resolved]
  - Coordination abnormal [Not Recovered/Not Resolved]

NARRATIVE: CASE EVENT DATE: 20210430
